FAERS Safety Report 25927098 (Version 1)
Quarter: 2025Q4

REPORT INFORMATION
  Report Type: Spontaneous
  Country: US (occurrence: US)
  Receive Date: 20251015
  Receipt Date: 20251015
  Transmission Date: 20260117
  Serious: No
  Sender: TEIKOKU
  Company Number: US-TPU-TPU-2025-00469

PATIENT
  Age: 62 Year
  Sex: Male

DRUGS (2)
  1. LIDOCAINE PATCH [Suspect]
     Active Substance: LIDOCAINE
     Indication: Arthralgia
     Dates: start: 202509
  2. LIDOCAINE PATCH [Suspect]
     Active Substance: LIDOCAINE
     Indication: Back pain

REACTIONS (1)
  - Prescription drug used without a prescription [Unknown]

NARRATIVE: CASE EVENT DATE: 20250901
